FAERS Safety Report 7275605-3 (Version None)
Quarter: 2011Q1

REPORT INFORMATION
  Report Type: 
  Country: None (occurrence: None)
  Receive Date: 20110202
  Receipt Date: 20110202
  Transmission Date: 20110831
  Serious: Yes (Other)
  Sender: FDA-Public Use
  Company Number: None

PATIENT
  Age: 42 Year
  Sex: Female
  Weight: 108.8633 kg

DRUGS (1)
  1. ALCOHOL PREP PAD N/A TRIAD [Suspect]
     Indication: THERAPEUTIC SKIN CARE TOPICAL
     Dosage: SINGLE USE AS REQUIRED TOP
     Route: 061

REACTIONS (3)
  - OSTEOMYELITIS [None]
  - PAIN IN JAW [None]
  - LYMPHADENOPATHY [None]
